FAERS Safety Report 5534355-1 (Version None)
Quarter: 2007Q4

REPORT INFORMATION
  Report Type: 
  Country: None (occurrence: None)
  Receive Date: 20071205
  Receipt Date: 20071205
  Transmission Date: 20080405
  Serious: Yes (Other)
  Sender: FDA-Public Use
  Company Number: A0697419A

PATIENT
  Age: 45 Year
  Sex: Female

DRUGS (2)
  1. ALLI [Suspect]
     Dates: start: 20071203, end: 20071204
  2. ONE A DAY VITAMINS [Concomitant]

REACTIONS (2)
  - ANAL HAEMORRHAGE [None]
  - RECTAL HAEMORRHAGE [None]
